FAERS Safety Report 7391892-5 (Version None)
Quarter: 2011Q2

REPORT INFORMATION
  Report Type: 
  Country: None (occurrence: None)
  Receive Date: 20110404
  Receipt Date: 20110330
  Transmission Date: 20111010
  Serious: Yes (Other)
  Sender: FDA-Public Use
  Company Number: US-B.I. PHARMACEUTICALS,INC./RIDGEFIELD-2011-BP-08360BP

PATIENT
  Sex: Male

DRUGS (1)
  1. PRADAXA [Suspect]
     Indication: ATRIAL FIBRILLATION
     Dosage: 300 MG
     Route: 048
     Dates: start: 20110304

REACTIONS (11)
  - ASTHENIA [None]
  - DYSURIA [None]
  - SUDDEN ONSET OF SLEEP [None]
  - WEIGHT INCREASED [None]
  - WHEEZING [None]
  - SWOLLEN TONGUE [None]
  - BLOOD GLUCOSE INCREASED [None]
  - DYSPNOEA [None]
  - OEDEMA PERIPHERAL [None]
  - CONTUSION [None]
  - DIZZINESS [None]
